FAERS Safety Report 4512408-4 (Version None)
Quarter: 2004Q4

REPORT INFORMATION
  Report Type: 
  Country: None (occurrence: None)
  Receive Date: 20041124
  Receipt Date: 20041115
  Transmission Date: 20050328
  Serious: Yes (Other)
  Sender: FDA-Public Use
  Company Number: 2004093234

PATIENT
  Age: 47 Year
  Sex: Male
  Weight: 95.2554 kg

DRUGS (1)
  1. NATURAL CITRUS LISTERINE (MENTHOL, METHYL SALICYLATE, EUCALYPTOL, THYM [Suspect]
     Indication: GINGIVITIS
     Dosage: A MOUTHFUL UP TO 5 TIMES QD, ORAL
     Route: 048
     Dates: start: 20040101

REACTIONS (3)
  - DEPENDENCE [None]
  - MEDICATION ERROR [None]
  - URTICARIA [None]
